FAERS Safety Report 24292698 (Version 1)
Quarter: 2024Q3

REPORT INFORMATION
  Report Type: Spontaneous
  Country: US (occurrence: None)
  Receive Date: 20240906
  Receipt Date: 20240906
  Transmission Date: 20241016
  Serious: No
  Sender: DOMPE FARMACEUTICI
  Company Number: US-FARMAPROD-202308-202310-2987

PATIENT
  Age: 51 Year
  Sex: Female

DRUGS (3)
  1. OXERVATE [Suspect]
     Active Substance: CENEGERMIN-BKBJ
     Indication: Ulcerative keratitis
     Route: 047
     Dates: start: 20230926
  2. ACTEMRA [Concomitant]
     Active Substance: TOCILIZUMAB
     Dosage: 80 MG/4 ML VIAL
  3. XOLAIR [Concomitant]
     Active Substance: OMALIZUMAB
     Dosage: 75 MG / 0.5 ML SYRINGE

REACTIONS (3)
  - Eye pain [Recovered/Resolved]
  - Eye swelling [Unknown]
  - Product dose omission issue [Unknown]

NARRATIVE: CASE EVENT DATE: 20230901
